FAERS Safety Report 7477933-5 (Version None)
Quarter: 2011Q2

REPORT INFORMATION
  Report Type: 
  Country: None (occurrence: None)
  Receive Date: 20110511
  Receipt Date: 20110511
  Transmission Date: 20111010
  Serious: No
  Sender: FDA-Public Use
  Company Number: None

PATIENT
  Age: 75 Year
  Sex: Female
  Weight: 83.9154 kg

DRUGS (1)
  1. AVELOX [Suspect]
     Indication: BRONCHITIS
     Dosage: ONE TABLET DAILY
     Dates: start: 20101013, end: 20101020

REACTIONS (4)
  - TENDON RUPTURE [None]
  - GAIT DISTURBANCE [None]
  - PAIN [None]
  - MUSCULAR WEAKNESS [None]
